FAERS Safety Report 5827369-5 (Version None)
Quarter: 2008Q3

REPORT INFORMATION
  Report Type: 
  Country: None (occurrence: None)
  Receive Date: 20080724
  Receipt Date: 20080709
  Transmission Date: 20090109
  Serious: Yes (Hospitalization)
  Sender: FDA-Public Use
  Company Number: TCI2008A03543

PATIENT
  Sex: Female

DRUGS (4)
  1. ACTOS [Suspect]
     Indication: DIABETES MELLITUS
     Dosage: PER ORAL; AROUND 04/04/3008- MID/JUN/2008
     Route: 048
     Dates: start: 20080404, end: 20080601
  2. BASEN (VOGLIBOSE ) [Concomitant]
  3. INSULIN HUMAN [Concomitant]
  4. METFORMIN HYDROCHLORIDE [Concomitant]

REACTIONS (2)
  - OEDEMA [None]
  - RENAL DISORDER [None]
